FAERS Safety Report 7935535-8 (Version None)
Quarter: 2011Q4

REPORT INFORMATION
  Report Type: 
  Country: None (occurrence: None)
  Receive Date: 20111123
  Receipt Date: 20111115
  Transmission Date: 20120403
  Serious: Yes (Death, Congenital Anomaly)
  Sender: FDA-Public Use
  Company Number: NL-BIOGENIDEC-2011BI044205

PATIENT

DRUGS (1)
  1. TYSABRI [Suspect]
     Indication: MULTIPLE SCLEROSIS
     Dates: end: 20110301

REACTIONS (1)
  - POTTER'S SYNDROME [None]
